FAERS Safety Report 9190664 (Version 1)
Quarter: 2013Q1

REPORT INFORMATION
  Report Type: Spontaneous
  Country: US (occurrence: None)
  Receive Date: 20120703
  Receipt Date: 20120703
  Transmission Date: 20140127
  Serious: Yes (Other)
  Sender: FDA-Public Use
  Company Number: PHEH2012US008150

PATIENT
  Sex: Female

DRUGS (1)
  1. GILENYA (FTY)CAPSULE, 0.5MG [Suspect]
     Route: 048
     Dates: start: 20111208

REACTIONS (7)
  - Sensation of pressure [None]
  - Dysphonia [None]
  - Chest discomfort [None]
  - Headache [None]
  - Lacrimation increased [None]
  - Eye swelling [None]
  - Bronchitis [None]
